FAERS Safety Report 8513772-1 (Version None)
Quarter: 2012Q3

REPORT INFORMATION
  Report Type: 
  Country: None (occurrence: None)
  Receive Date: 20120705
  Receipt Date: 20120626
  Transmission Date: 20120928
  Serious: Yes (Hospitalization)
  Sender: FDA-Public Use
  Company Number: DKLU1082684

PATIENT
  Age: 3 Year
  Sex: Female

DRUGS (4)
  1. TOPAMAX [Concomitant]
  2. SABRIL [Suspect]
     Indication: INFANTILE SPASMS
     Dosage: 1000 MG MILLIGRAM(S), AM, ORAL, 1000 MG MILLIGRAM(S), PM, ORAL
     Route: 048
     Dates: start: 20100427
  3. SABRIL [Suspect]
     Indication: INFANTILE SPASMS
     Dosage: 1000 MG MILLIGRAM(S), AM, ORAL, 1000 MG MILLIGRAM(S), PM, ORAL
     Route: 048
     Dates: start: 20100427
  4. CLONAZEPAM [Concomitant]

REACTIONS (1)
  - RENAL FAILURE [None]
